FAERS Safety Report 13258471 (Version 5)
Quarter: 2018Q4

REPORT INFORMATION
  Report Type: Spontaneous
  Country: US (occurrence: US)
  Receive Date: 20170222
  Receipt Date: 20181221
  Transmission Date: 20190204
  Serious: Yes (Hospitalization, Other)
  Sender: FDA-Public Use
  Company Number: US-BIOGEN-2017BI00358866

PATIENT
  Age: 62 Year
  Sex: Female

DRUGS (2)
  1. TYSABRI [Suspect]
     Active Substance: NATALIZUMAB
     Indication: MULTIPLE SCLEROSIS
     Route: 065
     Dates: start: 20061101
  2. CYTOXAN [Suspect]
     Active Substance: CYCLOPHOSPHAMIDE
     Indication: PRODUCT USED FOR UNKNOWN INDICATION
     Route: 065

REACTIONS (39)
  - Mental disorder [Recovered/Resolved]
  - Intestinal obstruction [Recovered/Resolved]
  - Lower limb fracture [Unknown]
  - Peripheral vascular disorder [Unknown]
  - Malaise [Recovered/Resolved]
  - Ulcer [Recovered/Resolved]
  - Incontinence [Recovered/Resolved]
  - Bradyphrenia [Recovered/Resolved]
  - Asthenia [Recovered/Resolved]
  - Nausea [Recovered/Resolved]
  - Mobility decreased [Recovered/Resolved]
  - Physical deconditioning [Not Recovered/Not Resolved]
  - Hypotension [Recovered/Resolved]
  - Fatigue [Recovered/Resolved]
  - Pulmonary thrombosis [Recovered/Resolved]
  - Cellulitis [Recovered/Resolved]
  - Urinary retention [Recovered/Resolved]
  - Urinary tract disorder [Recovered/Resolved]
  - Anaemia [Unknown]
  - Cerebral small vessel ischaemic disease [Unknown]
  - Multiple sclerosis [Recovered/Resolved]
  - Peripheral swelling [Recovered/Resolved]
  - Vomiting [Recovered/Resolved]
  - Fall [Recovered/Resolved]
  - Hypertension [Recovered/Resolved]
  - Depression suicidal [Unknown]
  - Loss of consciousness [Unknown]
  - Pain [Recovered/Resolved]
  - Hypoglycaemia [Recovered/Resolved]
  - Gait inability [Unknown]
  - Dizziness [Recovered/Resolved]
  - Insomnia [Not Recovered/Not Resolved]
  - Anaphylactic reaction [Recovered/Resolved]
  - Somnolence [Recovered/Resolved]
  - Hypersensitivity [Recovered/Resolved]
  - Rotator cuff syndrome [Recovered/Resolved]
  - Infertility [Recovered/Resolved]
  - Protein total decreased [Not Recovered/Not Resolved]
  - Motor dysfunction [Not Recovered/Not Resolved]

NARRATIVE: CASE EVENT DATE: 2016
